FAERS Safety Report 18385060 (Version 3)
Quarter: 2021Q2

REPORT INFORMATION
  Report Type: Other
  Country: TW (occurrence: TW)
  Receive Date: 20201014
  Receipt Date: 20210531
  Transmission Date: 20210717
  Serious: Yes (Hospitalization, Other)
  Sender: FDA-Public Use
  Company Number: TW-ROCHE-2694817

PATIENT
  Age: 9 Year
  Sex: Female
  Weight: 15.4 kg

DRUGS (1)
  1. RISDIPLAM. [Suspect]
     Active Substance: RISDIPLAM
     Indication: SPINAL MUSCULAR ATROPHY
     Route: 048
     Dates: start: 20200817

REACTIONS (10)
  - Intercepted product dispensing error [Unknown]
  - Pneumonia [Recovered/Resolved]
  - Pneumonia aspiration [Recovered/Resolved]
  - Dehydration [Recovered/Resolved]
  - Respiratory failure [Recovered/Resolved]
  - Constipation [Recovered/Resolved]
  - Respiratory failure [Recovered/Resolved]
  - Ileus [Recovered/Resolved]
  - Respiratory distress [Recovered/Resolved]
  - Gastritis [Recovered/Resolved]

NARRATIVE: CASE EVENT DATE: 20200904
